FAERS Safety Report 9144545 (Version 2)
Quarter: 2013Q1

REPORT INFORMATION
  Report Type: Spontaneous
  Country: US (occurrence: US)
  Receive Date: 20130306
  Receipt Date: 20130319
  Transmission Date: 20140127
  Serious: Yes (Other)
  Sender: FDA-Public Use
  Company Number: CHPA2013US003929

PATIENT
  Age: 72 Year
  Sex: Female

DRUGS (3)
  1. VOLTAREN GEL [Suspect]
     Indication: NECK PAIN
     Dosage: UNK, BID
     Route: 061
     Dates: start: 20130205, end: 20130224
  2. VOLTAREN GEL [Suspect]
     Indication: MUSCULOSKELETAL PAIN
  3. VOLTAREN GEL [Suspect]
     Indication: PAIN IN EXTREMITY

REACTIONS (4)
  - Application site pain [Recovered/Resolved]
  - Application site pruritus [Recovered/Resolved]
  - Application site erythema [Recovered/Resolved]
  - Drug administered at inappropriate site [Unknown]
